FAERS Safety Report 7420602-8 (Version None)
Quarter: 2011Q2

REPORT INFORMATION
  Report Type: 
  Country: None (occurrence: None)
  Receive Date: 20110418
  Receipt Date: 20110407
  Transmission Date: 20111010
  Serious: Yes (Hospitalization, Other)
  Sender: FDA-Public Use
  Company Number: US-BAXTER-2010BH002569

PATIENT
  Age: 58 Year
  Sex: Male
  Weight: 62 kg

DRUGS (212)
  1. HEPARIN SODIUM INJECTION [Suspect]
     Indication: CARDIAC ANEURYSM REPAIR
     Route: 042
     Dates: start: 20071123, end: 20071123
  2. HEPARIN SODIUM INJECTION [Suspect]
     Route: 042
     Dates: start: 20071112, end: 20071112
  3. HEPARIN SODIUM INJECTION [Suspect]
     Route: 042
     Dates: start: 20071112, end: 20071112
  4. HEPARIN SODIUM INJECTION [Suspect]
     Route: 042
     Dates: start: 20071123, end: 20071123
  5. HEPARIN SODIUM INJECTION [Suspect]
     Route: 042
     Dates: start: 20080122, end: 20080122
  6. HEPARIN SODIUM INJECTION [Suspect]
     Route: 042
     Dates: start: 20071125, end: 20071127
  7. HEPARIN SODIUM INJECTION [Suspect]
     Route: 040
     Dates: start: 20080208, end: 20080208
  8. HEPARIN SODIUM INJECTION [Suspect]
     Route: 040
     Dates: start: 20080208, end: 20080208
  9. HEPARIN SODIUM INJECTION [Suspect]
     Route: 042
     Dates: start: 20080130, end: 20080130
  10. HEPARIN SODIUM 5,000 UNITS IN DEXTROSE 5% [Suspect]
     Indication: CATHETERISATION CARDIAC
     Route: 042
     Dates: start: 20071118, end: 20071121
  11. HEPARIN SODIUM 5,000 UNITS IN DEXTROSE 5% [Suspect]
     Route: 042
     Dates: start: 20071208, end: 20071208
  12. HEPARIN SODIUM 1,000 UNITS AND SODIUM CHLORIDE 0.9% [Suspect]
     Route: 042
     Dates: start: 20071214, end: 20071214
  13. SODIUM CHLORIDE [Concomitant]
     Indication: PRODUCT USED FOR UNKNOWN INDICATION
     Route: 065
     Dates: start: 20071101, end: 20071201
  14. CHLORHEXIDINE GLUCONATE [Concomitant]
     Indication: PRODUCT USED FOR UNKNOWN INDICATION
     Route: 065
     Dates: start: 20071101, end: 20071201
  15. XANAX [Concomitant]
     Indication: PRODUCT USED FOR UNKNOWN INDICATION
     Route: 065
     Dates: start: 20071101, end: 20071201
  16. ALBUTEIN [Concomitant]
     Indication: PRODUCT USED FOR UNKNOWN INDICATION
     Route: 042
     Dates: start: 20071101, end: 20071201
  17. ASPIRIN [Concomitant]
     Indication: PRODUCT USED FOR UNKNOWN INDICATION
     Route: 065
     Dates: start: 20071101, end: 20071201
  18. TOBRAMYCIN [Concomitant]
     Indication: PRODUCT USED FOR UNKNOWN INDICATION
     Route: 065
     Dates: start: 20071101, end: 20071201
  19. ACETAMINOPHEN W/ PROPOXYPHENE HCL [Concomitant]
     Indication: PRODUCT USED FOR UNKNOWN INDICATION
     Route: 065
  20. PREGABALIN [Concomitant]
     Indication: PRODUCT USED FOR UNKNOWN INDICATION
     Route: 065
     Dates: start: 20080110, end: 20080115
  21. AMBIEN [Concomitant]
     Indication: PRODUCT USED FOR UNKNOWN INDICATION
     Route: 065
     Dates: start: 20080110, end: 20080115
  22. MIDAZOLAM [Concomitant]
     Indication: SURGERY
     Route: 065
     Dates: start: 20080110, end: 20080115
  23. MAGNESIUM OXIDE [Concomitant]
     Indication: PRODUCT USED FOR UNKNOWN INDICATION
     Route: 065
     Dates: start: 20080130, end: 20080202
  24. VYTORIN [Concomitant]
     Indication: PRODUCT USED FOR UNKNOWN INDICATION
     Route: 048
  25. ZETIA [Concomitant]
     Indication: PRODUCT USED FOR UNKNOWN INDICATION
     Route: 065
  26. HEPARIN SODIUM INJECTION [Suspect]
     Route: 065
     Dates: start: 20071126, end: 20071126
  27. HEPARIN SODIUM INJECTION [Suspect]
     Route: 042
     Dates: start: 20080122, end: 20080122
  28. HEPARIN SODIUM INJECTION [Suspect]
     Route: 040
     Dates: start: 20080208, end: 20080208
  29. HEPARIN SODIUM INJECTION [Suspect]
     Route: 040
     Dates: start: 20080208, end: 20080208
  30. HEPARIN SODIUM INJECTION [Suspect]
     Route: 042
     Dates: start: 20080407, end: 20080407
  31. HEPARIN SODIUM INJECTION [Suspect]
     Route: 042
     Dates: start: 20080407, end: 20080407
  32. HEPARIN SODIUM INJECTION [Suspect]
     Route: 042
     Dates: start: 20080407, end: 20080407
  33. HEPARIN SODIUM INJECTION [Suspect]
     Route: 065
     Dates: start: 20080208, end: 20080208
  34. HEPARIN SODIUM INJECTION [Suspect]
     Route: 065
     Dates: start: 20080208, end: 20080208
  35. HEPARIN SODIUM INJECTION [Suspect]
     Route: 065
     Dates: start: 20080208, end: 20080208
  36. HEPARIN SODIUM INJECTION [Suspect]
     Route: 042
     Dates: start: 20081216, end: 20081216
  37. HEPARIN SODIUM 5,000 UNITS IN DEXTROSE 5% [Suspect]
     Route: 042
     Dates: start: 20071206, end: 20071206
  38. HEPARIN SODIUM 5,000 UNITS IN DEXTROSE 5% [Suspect]
     Route: 042
     Dates: start: 20080130, end: 20080202
  39. HEPARIN SODIUM 5,000 UNITS IN DEXTROSE 5% [Suspect]
     Route: 042
     Dates: start: 20080206, end: 20080211
  40. HEPARIN SODIUM 1,000 UNITS AND SODIUM CHLORIDE 0.9% [Suspect]
     Indication: CONTINUOUS HAEMODIAFILTRATION
     Route: 042
     Dates: start: 20071124, end: 20071124
  41. HEPARIN SODIUM 1,000 UNITS AND SODIUM CHLORIDE 0.9% [Suspect]
     Route: 042
     Dates: start: 20071123, end: 20071123
  42. BENICAR [Concomitant]
     Indication: PRODUCT USED FOR UNKNOWN INDICATION
     Route: 065
  43. ISOSORBIDE MONONITRATE [Concomitant]
     Indication: PRODUCT USED FOR UNKNOWN INDICATION
     Route: 065
     Dates: start: 20071101, end: 20071201
  44. THROMBOGEN [Concomitant]
     Indication: PRODUCT USED FOR UNKNOWN INDICATION
     Route: 061
     Dates: start: 20071101, end: 20071201
  45. EPHEDRINE [Concomitant]
     Indication: PRODUCT USED FOR UNKNOWN INDICATION
     Route: 065
     Dates: start: 20071101, end: 20071201
  46. PHENYLEPHRINE HCL [Concomitant]
     Indication: PRODUCT USED FOR UNKNOWN INDICATION
     Route: 065
     Dates: start: 20071101, end: 20071201
  47. VASOPRESSIN INJECTION [Concomitant]
     Indication: BLOOD PRESSURE MANAGEMENT
     Route: 042
  48. CEFEPIME [Concomitant]
     Indication: PRODUCT USED FOR UNKNOWN INDICATION
     Route: 065
     Dates: start: 20071101, end: 20071201
  49. ATIVAN [Concomitant]
     Indication: PRODUCT USED FOR UNKNOWN INDICATION
     Route: 065
     Dates: start: 20071101, end: 20071201
  50. HYDROCORTISONE [Concomitant]
     Indication: PRODUCT USED FOR UNKNOWN INDICATION
     Route: 042
     Dates: start: 20071101, end: 20071201
  51. DULCOLAX [Concomitant]
     Indication: PRODUCT USED FOR UNKNOWN INDICATION
     Route: 065
     Dates: start: 20071101, end: 20071201
  52. FENTANYL [Concomitant]
     Route: 065
     Dates: start: 20080130, end: 20080202
  53. HEPARIN SODIUM INJECTION [Suspect]
     Indication: CATHETERISATION CARDIAC
     Route: 042
     Dates: start: 20071123, end: 20071123
  54. HEPARIN SODIUM INJECTION [Suspect]
     Indication: CORONARY ANGIOPLASTY
     Route: 042
     Dates: start: 20071123, end: 20071123
  55. HEPARIN SODIUM INJECTION [Suspect]
     Route: 042
     Dates: start: 20071112, end: 20071112
  56. HEPARIN SODIUM INJECTION [Suspect]
     Route: 042
     Dates: start: 20071112, end: 20071112
  57. HEPARIN SODIUM INJECTION [Suspect]
     Route: 042
     Dates: start: 20080110, end: 20080110
  58. HEPARIN SODIUM INJECTION [Suspect]
     Route: 042
     Dates: start: 20080122, end: 20080122
  59. HEPARIN SODIUM INJECTION [Suspect]
     Route: 042
     Dates: start: 20071125, end: 20071127
  60. HEPARIN SODIUM INJECTION [Suspect]
     Route: 042
     Dates: start: 20080407, end: 20080407
  61. HEPARIN SODIUM INJECTION [Suspect]
     Route: 065
     Dates: start: 20080208, end: 20080208
  62. HEPARIN SODIUM 5,000 UNITS IN DEXTROSE 5% [Suspect]
     Indication: THROMBOSIS PROPHYLAXIS
     Route: 042
     Dates: start: 20071118, end: 20071121
  63. HEPARIN SODIUM 5,000 UNITS IN DEXTROSE 5% [Suspect]
     Route: 042
     Dates: start: 20071204, end: 20071204
  64. HEPARIN SODIUM 5,000 UNITS IN DEXTROSE 5% [Suspect]
     Route: 042
     Dates: start: 20080206, end: 20080211
  65. HEPARIN SODIUM 1,000 UNITS AND SODIUM CHLORIDE 0.9% [Suspect]
     Indication: INTRAVENOUS CATHETER MANAGEMENT
     Route: 042
     Dates: start: 20071124, end: 20071124
  66. HEPARIN SODIUM 1,000 UNITS AND SODIUM CHLORIDE 0.9% [Suspect]
     Route: 042
     Dates: start: 20080208, end: 20080208
  67. CARDIZEM [Concomitant]
     Indication: PRODUCT USED FOR UNKNOWN INDICATION
     Route: 065
  68. EPINEPHRINE [Concomitant]
     Indication: PRODUCT USED FOR UNKNOWN INDICATION
     Route: 065
     Dates: start: 20071101, end: 20071201
  69. PANCURONIUM BROMIDE [Concomitant]
     Indication: PRODUCT USED FOR UNKNOWN INDICATION
     Route: 065
     Dates: start: 20071101, end: 20071201
  70. DIGOXIN [Concomitant]
     Indication: PRODUCT USED FOR UNKNOWN INDICATION
     Route: 065
     Dates: start: 20071101, end: 20071201
  71. FACTOR VIIA [Concomitant]
     Indication: PRODUCT USED FOR UNKNOWN INDICATION
     Route: 065
     Dates: start: 20071101, end: 20071201
  72. BENADRYL ^WARNER-LAMBERT^               /USA/ [Concomitant]
     Indication: PRODUCT USED FOR UNKNOWN INDICATION
     Route: 065
     Dates: start: 20080110, end: 20080115
  73. PAPAVERINE [Concomitant]
     Indication: PRODUCT USED FOR UNKNOWN INDICATION
     Route: 065
  74. HEPARIN SODIUM INJECTION [Suspect]
     Indication: CORONARY ARTERY BYPASS
     Route: 042
     Dates: start: 20071123, end: 20071123
  75. HEPARIN SODIUM INJECTION [Suspect]
     Indication: IMPLANTABLE DEFIBRILLATOR INSERTION
     Route: 042
     Dates: start: 20071123, end: 20071123
  76. HEPARIN SODIUM INJECTION [Suspect]
     Route: 042
     Dates: start: 20080110, end: 20080110
  77. HEPARIN SODIUM INJECTION [Suspect]
     Route: 042
     Dates: start: 20080110, end: 20080110
  78. HEPARIN SODIUM INJECTION [Suspect]
     Route: 042
     Dates: start: 20080110, end: 20080110
  79. HEPARIN SODIUM INJECTION [Suspect]
     Route: 065
     Dates: start: 20071126, end: 20071126
  80. HEPARIN SODIUM INJECTION [Suspect]
     Route: 065
     Dates: start: 20071126, end: 20071126
  81. HEPARIN SODIUM INJECTION [Suspect]
     Route: 065
     Dates: start: 20071126, end: 20071126
  82. HEPARIN SODIUM INJECTION [Suspect]
     Route: 042
     Dates: start: 20080122, end: 20080122
  83. HEPARIN SODIUM INJECTION [Suspect]
     Route: 042
     Dates: start: 20080122, end: 20080122
  84. HEPARIN SODIUM INJECTION [Suspect]
     Route: 042
     Dates: start: 20080407, end: 20080407
  85. HEPARIN SODIUM INJECTION [Suspect]
     Route: 042
     Dates: start: 20080407, end: 20080407
  86. HEPARIN SODIUM INJECTION [Suspect]
     Route: 065
     Dates: start: 20080208, end: 20080208
  87. HEPARIN SODIUM INJECTION [Suspect]
     Route: 042
     Dates: start: 20081216, end: 20081216
  88. HEPARIN SODIUM INJECTION [Suspect]
     Route: 042
     Dates: start: 20081216, end: 20081216
  89. HEPARIN SODIUM 5,000 UNITS IN DEXTROSE 5% [Suspect]
     Route: 042
     Dates: start: 20071204, end: 20071204
  90. HEPARIN SODIUM 5,000 UNITS IN DEXTROSE 5% [Suspect]
     Route: 042
     Dates: start: 20071204, end: 20071204
  91. HEPARIN SODIUM 5,000 UNITS IN DEXTROSE 5% [Suspect]
     Route: 042
     Dates: start: 20080130, end: 20080202
  92. HEPARIN SODIUM 1,000 UNITS AND SODIUM CHLORIDE 0.9% [Suspect]
     Route: 042
     Dates: start: 20080110, end: 20080110
  93. HEPARIN SODIUM 1,000 UNITS AND SODIUM CHLORIDE 0.9% [Suspect]
     Route: 042
     Dates: start: 20080110, end: 20080110
  94. HEPARIN SODIUM 1,000 UNITS AND SODIUM CHLORIDE 0.9% [Suspect]
     Route: 042
     Dates: start: 20080208, end: 20080208
  95. ACETAMINOPHEN AND HYDROCODONE BITARTRATE [Concomitant]
     Indication: PRODUCT USED FOR UNKNOWN INDICATION
     Route: 065
  96. GLUCAGON [Concomitant]
     Indication: PRODUCT USED FOR UNKNOWN INDICATION
     Route: 065
  97. METFORMIN [Concomitant]
     Indication: PRODUCT USED FOR UNKNOWN INDICATION
     Route: 065
  98. TOPROL-XL [Concomitant]
     Indication: PRODUCT USED FOR UNKNOWN INDICATION
     Route: 065
  99. CANDESARTAN CILEXETIL [Concomitant]
     Indication: PRODUCT USED FOR UNKNOWN INDICATION
     Route: 065
     Dates: start: 20071101, end: 20071201
  100. SODIUM BICARBONATE [Concomitant]
     Indication: PRODUCT USED FOR UNKNOWN INDICATION
     Route: 065
     Dates: start: 20071101, end: 20071201
  101. ZOFRAN [Concomitant]
     Indication: NAUSEA
     Route: 042
  102. FENTANYL [Concomitant]
     Route: 065
     Dates: start: 20080110, end: 20080115
  103. STARLIX [Concomitant]
     Indication: PRODUCT USED FOR UNKNOWN INDICATION
     Route: 048
     Dates: start: 20080110, end: 20080115
  104. BUMETANIDE [Concomitant]
     Indication: PRODUCT USED FOR UNKNOWN INDICATION
     Route: 065
     Dates: start: 20080130, end: 20080202
  105. MAGNESIUM SULFATE [Concomitant]
     Route: 065
  106. CEFTIN [Concomitant]
     Indication: PRODUCT USED FOR UNKNOWN INDICATION
     Route: 065
  107. HEPARIN SODIUM INJECTION [Suspect]
     Route: 042
     Dates: start: 20071112, end: 20071112
  108. HEPARIN SODIUM INJECTION [Suspect]
     Route: 042
     Dates: start: 20071123, end: 20071123
  109. HEPARIN SODIUM INJECTION [Suspect]
     Route: 042
     Dates: start: 20071123, end: 20071123
  110. HEPARIN SODIUM INJECTION [Suspect]
     Route: 042
     Dates: start: 20080110, end: 20080110
  111. HEPARIN SODIUM INJECTION [Suspect]
     Route: 042
     Dates: start: 20080122, end: 20080122
  112. HEPARIN SODIUM INJECTION [Suspect]
     Route: 042
     Dates: start: 20071125, end: 20071127
  113. HEPARIN SODIUM INJECTION [Suspect]
     Route: 042
     Dates: start: 20080407, end: 20080407
  114. HEPARIN SODIUM INJECTION [Suspect]
     Route: 065
     Dates: start: 20080208, end: 20080208
  115. HEPARIN SODIUM INJECTION [Suspect]
     Route: 042
     Dates: start: 20081216, end: 20081216
  116. HEPARIN SODIUM 5,000 UNITS IN DEXTROSE 5% [Suspect]
     Indication: CONTINUOUS HAEMODIAFILTRATION
     Route: 042
     Dates: start: 20071118, end: 20071121
  117. HEPARIN SODIUM 5,000 UNITS IN DEXTROSE 5% [Suspect]
     Route: 042
     Dates: start: 20071206, end: 20071206
  118. HEPARIN SODIUM 1,000 UNITS AND SODIUM CHLORIDE 0.9% [Suspect]
     Route: 042
     Dates: start: 20071126, end: 20071126
  119. HEPARIN SODIUM 1,000 UNITS AND SODIUM CHLORIDE 0.9% [Suspect]
     Route: 042
     Dates: start: 20071123, end: 20071123
  120. HEPARIN SODIUM 1,000 UNITS AND SODIUM CHLORIDE 0.9% [Suspect]
     Route: 042
     Dates: start: 20071125, end: 20071127
  121. MANNITOL [Concomitant]
     Indication: PRODUCT USED FOR UNKNOWN INDICATION
     Route: 065
     Dates: start: 20071101, end: 20071201
  122. FORANE [Concomitant]
     Indication: ANAESTHESIA
     Route: 065
     Dates: start: 20071101, end: 20071201
  123. PANTOPRAZOLE SODIUM [Concomitant]
     Indication: PRODUCT USED FOR UNKNOWN INDICATION
     Route: 042
     Dates: start: 20071101, end: 20071201
  124. MILRINONE [Concomitant]
     Indication: PRODUCT USED FOR UNKNOWN INDICATION
     Route: 065
     Dates: start: 20071101, end: 20071201
  125. ALTACE [Concomitant]
     Indication: PRODUCT USED FOR UNKNOWN INDICATION
     Route: 065
     Dates: start: 20071101, end: 20071201
  126. ERTAPENEM [Concomitant]
     Indication: PRODUCT USED FOR UNKNOWN INDICATION
     Route: 042
     Dates: start: 20071101, end: 20071201
  127. VERSED [Concomitant]
     Indication: PRODUCT USED FOR UNKNOWN INDICATION
     Route: 042
     Dates: start: 20071101, end: 20071201
  128. COLACE [Concomitant]
     Indication: PRODUCT USED FOR UNKNOWN INDICATION
     Route: 065
     Dates: start: 20071101, end: 20071201
  129. ATROVENT [Concomitant]
     Indication: RESPIRATORY DISORDER
     Route: 065
     Dates: start: 20071101, end: 20071201
  130. PIPERACILLIN [Concomitant]
     Indication: PRODUCT USED FOR UNKNOWN INDICATION
     Route: 065
     Dates: start: 20071101, end: 20071201
  131. DEXTRAN 40 [Concomitant]
     Indication: PRODUCT USED FOR UNKNOWN INDICATION
     Route: 065
     Dates: start: 20071101, end: 20071201
  132. POTASSIUM CHLORIDE [Concomitant]
     Indication: PRODUCT USED FOR UNKNOWN INDICATION
     Route: 042
     Dates: start: 20071101, end: 20071201
  133. NEURONTIN [Concomitant]
     Indication: PAIN IN EXTREMITY
     Route: 065
  134. LASIX [Concomitant]
     Indication: PRODUCT USED FOR UNKNOWN INDICATION
     Route: 065
     Dates: start: 20080110, end: 20080115
  135. ISOSORBIDE MONONITRATE [Concomitant]
     Route: 065
     Dates: start: 20080110, end: 20080115
  136. MAGNESIUM SULFATE [Concomitant]
     Indication: PRODUCT USED FOR UNKNOWN INDICATION
     Route: 065
     Dates: start: 20080130, end: 20080202
  137. HEPARIN SODIUM INJECTION [Suspect]
     Route: 042
     Dates: start: 20071123, end: 20071123
  138. HEPARIN SODIUM INJECTION [Suspect]
     Route: 042
     Dates: start: 20071123, end: 20071123
  139. HEPARIN SODIUM INJECTION [Suspect]
     Route: 065
     Dates: start: 20071126, end: 20071126
  140. HEPARIN SODIUM INJECTION [Suspect]
     Route: 065
     Dates: start: 20071126, end: 20071126
  141. HEPARIN SODIUM INJECTION [Suspect]
     Route: 042
     Dates: start: 20080122, end: 20080122
  142. HEPARIN SODIUM INJECTION [Suspect]
     Route: 042
     Dates: start: 20071125, end: 20071127
  143. HEPARIN SODIUM INJECTION [Suspect]
     Route: 042
     Dates: start: 20071125, end: 20071127
  144. HEPARIN SODIUM INJECTION [Suspect]
     Route: 040
     Dates: start: 20080208, end: 20080208
  145. HEPARIN SODIUM INJECTION [Suspect]
     Route: 065
     Dates: start: 20080208, end: 20080208
  146. HEPARIN SODIUM INJECTION [Suspect]
     Route: 042
     Dates: start: 20081216, end: 20081216
  147. HEPARIN SODIUM INJECTION [Suspect]
     Route: 042
     Dates: start: 20081216, end: 20081216
  148. HEPARIN SODIUM INJECTION [Suspect]
     Route: 042
     Dates: start: 20081216, end: 20081216
  149. HEPARIN SODIUM INJECTION [Suspect]
     Route: 042
     Dates: start: 20080204, end: 20080221
  150. COREG [Concomitant]
     Indication: PRODUCT USED FOR UNKNOWN INDICATION
  151. CALCIUM CHLORIDE ^BIOTIKA^ [Concomitant]
     Indication: PRODUCT USED FOR UNKNOWN INDICATION
     Route: 065
     Dates: start: 20071101, end: 20071201
  152. ETOMIDATE [Concomitant]
     Indication: PRODUCT USED FOR UNKNOWN INDICATION
     Route: 065
     Dates: start: 20071101, end: 20071201
  153. PLEGISOL [Concomitant]
     Indication: PRODUCT USED FOR UNKNOWN INDICATION
     Route: 065
     Dates: start: 20071101, end: 20071201
  154. FENTANYL [Concomitant]
     Indication: PRODUCT USED FOR UNKNOWN INDICATION
     Route: 065
     Dates: start: 20071101, end: 20071201
  155. EPOPROSTENOL SODIUM [Concomitant]
     Indication: PRODUCT USED FOR UNKNOWN INDICATION
     Route: 065
     Dates: start: 20071101, end: 20071201
  156. ACETAMINOPHEN [Concomitant]
     Indication: PRODUCT USED FOR UNKNOWN INDICATION
     Route: 065
     Dates: start: 20080110, end: 20080115
  157. PANTOPRAZOLE SODIUM [Concomitant]
     Route: 048
     Dates: start: 20080130, end: 20080202
  158. AMIODARONE [Concomitant]
     Route: 065
     Dates: start: 20080130, end: 20080202
  159. GUAIFENESIN [Concomitant]
     Indication: PRODUCT USED FOR UNKNOWN INDICATION
     Route: 065
     Dates: start: 20080130, end: 20080202
  160. CASPOFUNGIN [Concomitant]
     Indication: PRODUCT USED FOR UNKNOWN INDICATION
     Route: 042
  161. HEPARIN SODIUM INJECTION [Suspect]
     Route: 042
     Dates: start: 20071112, end: 20071112
  162. HEPARIN SODIUM INJECTION [Suspect]
     Route: 042
     Dates: start: 20071123, end: 20071123
  163. HEPARIN SODIUM INJECTION [Suspect]
     Route: 042
     Dates: start: 20080110, end: 20080110
  164. HEPARIN SODIUM INJECTION [Suspect]
     Route: 042
     Dates: start: 20071125, end: 20071127
  165. HEPARIN SODIUM INJECTION [Suspect]
     Route: 042
     Dates: start: 20071125, end: 20071127
  166. HEPARIN SODIUM INJECTION [Suspect]
     Route: 040
     Dates: start: 20080208, end: 20080208
  167. HEPARIN SODIUM INJECTION [Suspect]
     Route: 040
     Dates: start: 20080208, end: 20080208
  168. HEPARIN SODIUM INJECTION [Suspect]
     Route: 042
     Dates: start: 20080130, end: 20080130
  169. HEPARIN SODIUM INJECTION [Suspect]
     Route: 042
     Dates: start: 20080130, end: 20080130
  170. HEPARIN SODIUM INJECTION [Suspect]
     Route: 042
     Dates: start: 20080130, end: 20080130
  171. HEPARIN SODIUM INJECTION [Suspect]
     Route: 042
     Dates: start: 20080130, end: 20080130
  172. HEPARIN SODIUM 5,000 UNITS IN DEXTROSE 5% [Suspect]
     Route: 042
     Dates: start: 20071208, end: 20071208
  173. VANCOMYCIN HYDROCHLORIDE [Concomitant]
     Indication: SURGERY
     Route: 065
     Dates: start: 20071101, end: 20071201
  174. PROTAMINE SULFATE [Concomitant]
     Indication: PRODUCT USED FOR UNKNOWN INDICATION
     Route: 065
     Dates: start: 20071101, end: 20071201
  175. PRAVASTATIN [Concomitant]
     Indication: PRODUCT USED FOR UNKNOWN INDICATION
     Route: 065
     Dates: start: 20071101, end: 20071201
  176. DOPAMINE HCL [Concomitant]
     Indication: BLOOD PRESSURE
     Route: 065
     Dates: start: 20071101, end: 20071201
  177. ALBUTEROL [Concomitant]
     Indication: RESPIRATORY DISORDER
     Route: 065
     Dates: start: 20071101, end: 20071201
  178. LANTUS [Concomitant]
     Indication: PRODUCT USED FOR UNKNOWN INDICATION
     Route: 065
     Dates: start: 20071101, end: 20071201
  179. CALCIUM MAGNESIUM ZINC [Concomitant]
     Indication: PRODUCT USED FOR UNKNOWN INDICATION
     Route: 065
     Dates: start: 20080110, end: 20080115
  180. NOVOLOG [Concomitant]
     Indication: PRODUCT USED FOR UNKNOWN INDICATION
     Route: 065
  181. AMIODARONE [Concomitant]
     Route: 065
     Dates: start: 20080130, end: 20080202
  182. K-DUR [Concomitant]
     Indication: PRODUCT USED FOR UNKNOWN INDICATION
     Route: 065
     Dates: start: 20080130, end: 20080202
  183. GASTROVIST [Concomitant]
     Indication: PRODUCT USED FOR UNKNOWN INDICATION
     Route: 065
     Dates: start: 20080130, end: 20080202
  184. ACETAZOLAMIDE [Concomitant]
     Indication: PRODUCT USED FOR UNKNOWN INDICATION
     Route: 065
     Dates: start: 20080130, end: 20080202
  185. HEPARIN SODIUM INJECTION [Suspect]
     Indication: ARTERIOGRAM CORONARY
     Route: 042
     Dates: start: 20071123, end: 20071123
  186. HEPARIN SODIUM INJECTION [Suspect]
     Indication: INTRAVENOUS CATHETER MANAGEMENT
     Route: 042
     Dates: start: 20071123, end: 20071123
  187. HEPARIN SODIUM INJECTION [Suspect]
     Route: 042
     Dates: start: 20071112, end: 20071112
  188. HEPARIN SODIUM INJECTION [Suspect]
     Route: 042
     Dates: start: 20071123, end: 20071123
  189. HEPARIN SODIUM INJECTION [Suspect]
     Route: 042
     Dates: start: 20080110, end: 20080110
  190. HEPARIN SODIUM INJECTION [Suspect]
     Route: 065
     Dates: start: 20071126, end: 20071126
  191. HEPARIN SODIUM INJECTION [Suspect]
     Route: 042
     Dates: start: 20080130, end: 20080130
  192. HEPARIN SODIUM INJECTION [Suspect]
     Route: 042
     Dates: start: 20080130, end: 20080130
  193. HEPARIN SODIUM 5,000 UNITS IN DEXTROSE 5% [Suspect]
     Route: 042
     Dates: start: 20071206, end: 20071206
  194. HEPARIN SODIUM 5,000 UNITS IN DEXTROSE 5% [Suspect]
     Route: 042
     Dates: start: 20071208, end: 20071208
  195. HEPARIN SODIUM 5,000 UNITS IN DEXTROSE 5% [Suspect]
     Route: 042
     Dates: start: 20080130, end: 20080202
  196. HEPARIN SODIUM 5,000 UNITS IN DEXTROSE 5% [Suspect]
     Route: 042
     Dates: start: 20080206, end: 20080211
  197. HEPARIN SODIUM 1,000 UNITS AND SODIUM CHLORIDE 0.9% [Suspect]
     Route: 042
     Dates: start: 20071126, end: 20071126
  198. NITROGLYCERIN [Concomitant]
     Indication: PRODUCT USED FOR UNKNOWN INDICATION
     Route: 060
  199. ATROPINE SULFATE [Concomitant]
     Indication: PRODUCT USED FOR UNKNOWN INDICATION
     Route: 065
     Dates: start: 20071101, end: 20071201
  200. AMICAR [Concomitant]
     Indication: PRODUCT USED FOR UNKNOWN INDICATION
     Route: 065
     Dates: start: 20071101, end: 20071201
  201. AMIODARONE [Concomitant]
     Indication: PRODUCT USED FOR UNKNOWN INDICATION
     Route: 065
  202. XYLOCAINE [Concomitant]
     Indication: PRODUCT USED FOR UNKNOWN INDICATION
     Route: 065
     Dates: start: 20071101, end: 20071201
  203. CARDIOPLEGIC [Concomitant]
     Indication: PRODUCT USED FOR UNKNOWN INDICATION
     Route: 065
     Dates: start: 20071101, end: 20071201
  204. MORPHINE SULFATE [Concomitant]
     Indication: PRODUCT USED FOR UNKNOWN INDICATION
     Route: 065
     Dates: start: 20071101, end: 20071201
  205. HYDROCORTISONE SODIUM SUCCINATE [Concomitant]
     Indication: PRODUCT USED FOR UNKNOWN INDICATION
     Route: 042
     Dates: start: 20071101, end: 20071201
  206. FLUCONAZOLE [Concomitant]
     Indication: PRODUCT USED FOR UNKNOWN INDICATION
     Route: 042
     Dates: start: 20071101, end: 20071201
  207. SOLU-MEDROL [Concomitant]
     Indication: PRODUCT USED FOR UNKNOWN INDICATION
     Route: 065
     Dates: start: 20071101, end: 20071201
  208. DIFLUCAN [Concomitant]
     Indication: PRODUCT USED FOR UNKNOWN INDICATION
     Route: 065
     Dates: start: 20080110, end: 20080115
  209. METOCLOPRAMIDE [Concomitant]
     Indication: PRODUCT USED FOR UNKNOWN INDICATION
     Route: 065
     Dates: start: 20080130, end: 20080202
  210. LEVAQUIN [Concomitant]
     Indication: PRODUCT USED FOR UNKNOWN INDICATION
     Route: 065
     Dates: start: 20080130, end: 20080202
  211. NOREPINEPHRINE BITARTRATE [Concomitant]
     Indication: PRODUCT USED FOR UNKNOWN INDICATION
     Route: 065
     Dates: start: 20080130, end: 20080202
  212. NAPROXEN [Concomitant]
     Indication: PRODUCT USED FOR UNKNOWN INDICATION
     Route: 065

REACTIONS (35)
  - SEPSIS [None]
  - PERIPHERAL VASCULAR DISORDER [None]
  - ILEUS PARALYTIC [None]
  - PAIN IN EXTREMITY [None]
  - PNEUMONIA KLEBSIELLA [None]
  - CARDIORENAL SYNDROME [None]
  - GASTRIC ULCER [None]
  - PLATELET COUNT DECREASED [None]
  - HYPOTENSION [None]
  - SYSTEMIC CANDIDA [None]
  - CARDIOMEGALY [None]
  - GASTRITIS EROSIVE [None]
  - ASTHENIA [None]
  - MORTON'S NEUROMA [None]
  - MELAENA [None]
  - EPISTAXIS [None]
  - SYSTEMIC INFLAMMATORY RESPONSE SYNDROME [None]
  - ENTEROBACTER PNEUMONIA [None]
  - VENTRICULAR TACHYCARDIA [None]
  - PULMONARY OEDEMA [None]
  - ANAEMIA [None]
  - SKIN ULCER [None]
  - ACUTE RESPIRATORY FAILURE [None]
  - CARDIAC ANEURYSM [None]
  - RENAL FAILURE ACUTE [None]
  - HAEMATEMESIS [None]
  - GANGRENE [None]
  - INCISIONAL HERNIA, OBSTRUCTIVE [None]
  - NEUROPATHY PERIPHERAL [None]
  - ATRIAL FIBRILLATION [None]
  - DYSPNOEA [None]
  - PLEURAL EFFUSION [None]
  - DECUBITUS ULCER [None]
  - PYREXIA [None]
  - CONFUSIONAL STATE [None]
